FAERS Safety Report 7358098-7 (Version None)
Quarter: 2011Q1

REPORT INFORMATION
  Report Type: 
  Country: None (occurrence: None)
  Receive Date: 20110317
  Receipt Date: 20110308
  Transmission Date: 20110831
  Serious: Yes (Hospitalization)
  Sender: FDA-Public Use
  Company Number: IT-NOVOPROD-320767

PATIENT
  Sex: Male

DRUGS (7)
  1. LASIX M [Concomitant]
     Dosage: 125 MG, UNK
  2. TAPAZOLE [Concomitant]
     Dosage: 1 TAB, QD
  3. ACTRAPID [Suspect]
     Indication: TYPE 2 DIABETES MELLITUS
     Dosage: 26 IU, QD ( 6 IU + 10 IU + 10 IU)
     Route: 058
     Dates: start: 20090701, end: 20101129
  4. ACTRAPID [Suspect]
     Dosage: 26 IU, QD ( 6 IU + 10 IU + 10 IU)
     Route: 058
     Dates: start: 20101130
  5. ALDACTONE [Concomitant]
     Dosage: 1 CAPS, QD
  6. TRIATEC                            /00116401/ [Concomitant]
     Dosage: 1 TAB, QD
  7. LANTUS [Suspect]
     Dosage: 10 U, QD
     Route: 058
     Dates: start: 20090701

REACTIONS (3)
  - CARDIAC FAILURE [None]
  - CONDITION AGGRAVATED [None]
  - HYPOGLYCAEMIA [None]
